FAERS Safety Report 5146823-5 (Version None)
Quarter: 2006Q4

REPORT INFORMATION
  Report Type: 
  Country: None (occurrence: None)
  Receive Date: 20061107
  Receipt Date: 20061107
  Transmission Date: 20070319
  Serious: Yes (Hospitalization)
  Sender: FDA-Public Use
  Company Number: None

PATIENT
  Sex: Male
  Weight: 71.5 kg

DRUGS (8)
  1. CYCLOPHOSPHAMIDE [Suspect]
  2. ETOPOSIDE [Suspect]
  3. RITUXIMAB [Concomitant]
     Dates: start: 20060527
  4. DAUNORUBICIN HCL [Suspect]
     Dates: start: 20060703
  5. CYTARABINE [Suspect]
     Dates: start: 20060703
  6. TOSITUMOMAB [Suspect]
     Dates: start: 20060922
  7. CEFEPIME [Concomitant]
  8. FLUCONAZOLE [Concomitant]

REACTIONS (1)
  - FEBRILE NEUTROPENIA [None]
